FAERS Safety Report 5694988-9 (Version None)
Quarter: 2008Q2

REPORT INFORMATION
  Report Type: 
  Country: None (occurrence: None)
  Receive Date: 20080404
  Receipt Date: 20080324
  Transmission Date: 20081010
  Serious: Yes (Other)
  Sender: FDA-Public Use
  Company Number: JP-PFIZER INC-2007107536

PATIENT
  Sex: Female

DRUGS (6)
  1. ZOLOFT [Suspect]
     Route: 048
  2. ANTIHYPERTENSIVES [Concomitant]
     Route: 048
  3. LEXOTAN [Concomitant]
     Route: 048
  4. ALPRAZOLAM [Concomitant]
     Route: 048
  5. WYPAX [Concomitant]
  6. ALL OTHER THERAPEUTIC PRODUCTS [Concomitant]

REACTIONS (12)
  - ABDOMINAL PAIN UPPER [None]
  - ANOREXIA [None]
  - APATHY [None]
  - BLOOD PRESSURE DECREASED [None]
  - CONSTIPATION [None]
  - DIARRHOEA [None]
  - MALAISE [None]
  - MENIERE'S DISEASE [None]
  - SOMNOLENCE [None]
  - THIRST [None]
  - TREMOR [None]
  - WEIGHT DECREASED [None]
